FAERS Safety Report 6107395-1 (Version None)
Quarter: 2009Q1

REPORT INFORMATION
  Report Type: 
  Country: None (occurrence: None)
  Receive Date: 20090227
  Receipt Date: 20080908
  Transmission Date: 20090719
  Serious: Yes (Hospitalization)
  Sender: FDA-Public Use
  Company Number: 177204USA

PATIENT
  Age: 72 Year
  Sex: Female

DRUGS (2)
  1. HYDROCHLOROTHIAZIDE [Suspect]
  2. POTASSIUM CHLORIDE [Suspect]
     Dosage: 20 MILLEQUIVALENTS(10 MILLIEQUIVALENTS, 2 IN 1 D), ORAL
     Route: 048

REACTIONS (3)
  - BLOOD POTASSIUM DECREASED [None]
  - DIZZINESS [None]
  - FATIGUE [None]
